FAERS Safety Report 4989704-X (Version None)
Quarter: 2006Q2

REPORT INFORMATION
  Report Type: 
  Country: None (occurrence: None)
  Receive Date: 20060501
  Receipt Date: 20060418
  Transmission Date: 20061013
  Serious: Yes (Other)
  Sender: FDA-Public Use
  Company Number: US017204

PATIENT
  Age: 45 Year
  Sex: Male
  Weight: 81.6475 kg

DRUGS (4)
  1. GABITRIL [Suspect]
     Indication: DETOXIFICATION
     Dosage: 2 MG BID ORAL
     Route: 048
     Dates: start: 20060201, end: 20060316
  2. GABITRIL [Suspect]
     Indication: DETOXIFICATION
     Dosage: 2 MG TID ORAL
     Route: 048
     Dates: start: 20060317, end: 20060318
  3. XANAX [Concomitant]
  4. XANAX - SLOW RELEASE [Concomitant]

REACTIONS (8)
  - BALANCE DISORDER [None]
  - BLOOD PRESSURE INCREASED [None]
  - CEREBROVASCULAR ACCIDENT [None]
  - DIPLOPIA [None]
  - DRUG WITHDRAWAL SYNDROME [None]
  - NYSTAGMUS [None]
  - OPHTHALMOPLEGIA [None]
  - OSCILLOPSIA [None]
